FAERS Safety Report 8603082-6 (Version None)
Quarter: 2012Q3

REPORT INFORMATION
  Report Type: 
  Country: None (occurrence: None)
  Receive Date: 20120817
  Receipt Date: 20120730
  Transmission Date: 20120928
  Serious: Yes (Other)
  Sender: FDA-Public Use
  Company Number: US-ROCHE-1066022

PATIENT
  Age: 16 Year
  Sex: Male

DRUGS (2)
  1. IRINOTECAN HYDROCHLORIDE [Suspect]
     Indication: EPENDYMOMA
     Dosage: STARTING DOSE 125 MG/M2
     Route: 041
  2. AVASTIN [Suspect]
     Indication: EPENDYMOMA
     Dosage: 2 DOSES

REACTIONS (1)
  - OSTEONECROSIS [None]
